FAERS Safety Report 8565118 (Version 6)
Quarter: 2013Q3

REPORT INFORMATION
  Report Type: Report from Study
  Country: CA (occurrence: CA)
  Receive Date: 20120516
  Receipt Date: 20130822
  Transmission Date: 20140515
  Serious: No
  Sender: FDA-Public Use
  Company Number: PHHY2011CA64715

PATIENT
  Age: 54 Year
  Sex: Male

DRUGS (2)
  1. GILENYA [Suspect]
     Indication: RELAPSING-REMITTING MULTIPLE SCLEROSIS
     Dosage: 0.5 MG, DAILY
     Route: 048
     Dates: start: 20110712, end: 20120312
  2. GILENYA [Suspect]
     Dosage: 0.5 MG, DAILY
     Route: 048
     Dates: start: 20130227

REACTIONS (1)
  - Diarrhoea [Unknown]
